FAERS Safety Report 12457169 (Version 1)
Quarter: 2016Q2

REPORT INFORMATION
  Report Type: Spontaneous
  Country: DE (occurrence: DE)
  Receive Date: 20160610
  Receipt Date: 20160610
  Transmission Date: 20160815
  Serious: Yes (Hospitalization)
  Sender: FDA-Public Use
  Company Number: DE-TEVA-665370GER

PATIENT
  Age: 65 Year
  Sex: Male

DRUGS (33)
  1. DIAZEPAM. [Suspect]
     Active Substance: DIAZEPAM
     Dosage: 15 MILLIGRAM DAILY;
     Route: 048
     Dates: start: 20140318, end: 20140319
  2. SEROQUEL XR [Suspect]
     Active Substance: QUETIAPINE FUMARATE
     Dosage: 400 - 1200 MG
     Route: 048
     Dates: start: 2012, end: 2014
  3. QUILONUM RETARD [Suspect]
     Active Substance: LITHIUM CARBONATE
     Dosage: 225 MILLIGRAM DAILY;
     Route: 048
     Dates: start: 20140310, end: 20140321
  4. QUILONUM RETARD [Suspect]
     Active Substance: LITHIUM CARBONATE
     Dosage: 675 MILLIGRAM DAILY;
     Route: 048
  5. ZUCLOPENTHIXOL [Suspect]
     Active Substance: ZUCLOPENTHIXOL
     Route: 030
     Dates: start: 20140325
  6. METFORMIN [Concomitant]
     Active Substance: METFORMIN HYDROCHLORIDE
     Dosage: 2000 MILLIGRAM DAILY;
     Route: 048
     Dates: start: 2012
  7. EUTHYROX [Concomitant]
     Active Substance: LEVOTHYROXINE SODIUM
     Dosage: .075 MILLIGRAM DAILY;
     Route: 048
  8. DIAZEPAM. [Suspect]
     Active Substance: DIAZEPAM
     Dosage: 30 MILLIGRAM DAILY;
     Route: 048
     Dates: start: 20140324
  9. SEROQUEL XR [Suspect]
     Active Substance: QUETIAPINE FUMARATE
     Route: 048
     Dates: start: 20140321
  10. SEROQUEL XR [Suspect]
     Active Substance: QUETIAPINE FUMARATE
     Route: 048
     Dates: start: 20140322
  11. HALOPERIDOL. [Suspect]
     Active Substance: HALOPERIDOL
     Dosage: 4 MILLIGRAM DAILY;
     Route: 048
     Dates: start: 20140405, end: 20140406
  12. FLUPHENAZIN [Suspect]
     Active Substance: FLUPHENAZINE
     Route: 030
     Dates: start: 20130317
  13. QUILONUM RETARD [Suspect]
     Active Substance: LITHIUM CARBONATE
     Dosage: 450 MILLIGRAM DAILY;
     Route: 048
     Dates: start: 20140322, end: 20140327
  14. SPIRONOLACTON [Concomitant]
     Active Substance: SPIRONOLACTONE
     Dosage: 100 MILLIGRAM DAILY;
     Route: 048
     Dates: start: 2012
  15. RAMIPRIL. [Concomitant]
     Active Substance: RAMIPRIL
     Dosage: 2.5 MILLIGRAM DAILY;
     Route: 048
     Dates: start: 2010
  16. DIAZEPAM. [Suspect]
     Active Substance: DIAZEPAM
     Dosage: 35 MILLIGRAM DAILY;
     Route: 048
     Dates: start: 20140323
  17. QUILONUM RETARD [Suspect]
     Active Substance: LITHIUM CARBONATE
     Dosage: 450-900 MG SINCE YEARS WITH INTERRUPTION
     Route: 048
  18. TORASEMID [Concomitant]
     Active Substance: TORSEMIDE
     Dosage: 10 MILLIGRAM DAILY;
     Route: 048
  19. HALOPERIDOL. [Suspect]
     Active Substance: HALOPERIDOL
     Dosage: 10 MILLIGRAM DAILY;
     Route: 048
     Dates: start: 20140324, end: 20140402
  20. HALOPERIDOL. [Suspect]
     Active Substance: HALOPERIDOL
     Dosage: 6 MILLIGRAM DAILY;
     Route: 048
     Dates: start: 20140403, end: 20140404
  21. FLUNITRAZEPAM [Suspect]
     Active Substance: FLUNITRAZEPAM
     Dosage: 1 MILLIGRAM DAILY;
     Route: 048
     Dates: start: 20140321, end: 20140323
  22. DIAZEPAM. [Suspect]
     Active Substance: DIAZEPAM
     Route: 048
     Dates: start: 20140320
  23. DIAZEPAM. [Suspect]
     Active Substance: DIAZEPAM
     Dosage: 25 MILLIGRAM DAILY;
     Route: 048
     Dates: start: 20140321, end: 20140322
  24. SEROQUEL XR [Suspect]
     Active Substance: QUETIAPINE FUMARATE
     Route: 048
     Dates: start: 20140320
  25. TAMSULOSIN [Concomitant]
     Active Substance: TAMSULOSIN
     Dosage: .4 MILLIGRAM DAILY;
     Route: 048
     Dates: start: 2012
  26. FLUPHENAZIN [Suspect]
     Active Substance: FLUPHENAZINE
     Dates: start: 20140311
  27. FLUPHENAZIN [Suspect]
     Active Substance: FLUPHENAZINE
     Dates: start: 20140328
  28. ASPIRIN. [Concomitant]
     Active Substance: ASPIRIN
     Dosage: 100 MILLIGRAM DAILY;
     Route: 048
  29. NEURO [Concomitant]
     Route: 048
     Dates: start: 20140323, end: 20140405
  30. MAGNESIUM [Concomitant]
     Active Substance: MAGNESIUM
     Dates: start: 20140323, end: 20140405
  31. FLUNITRAZEPAM [Suspect]
     Active Substance: FLUNITRAZEPAM
     Dosage: 2 MILLIGRAM DAILY;
     Route: 048
     Dates: start: 20140324, end: 20140405
  32. DIAZEPAM. [Suspect]
     Active Substance: DIAZEPAM
     Route: 048
     Dates: start: 20140325
  33. SEROQUEL XR [Suspect]
     Active Substance: QUETIAPINE FUMARATE
     Dosage: 400 MILLIGRAM DAILY;
     Route: 048
     Dates: start: 20140310, end: 20140319

REACTIONS (2)
  - Salivary hypersecretion [Unknown]
  - Speech disorder [Unknown]

NARRATIVE: CASE EVENT DATE: 20140325
